FAERS Safety Report 6765893-1 (Version None)
Quarter: 2010Q2

REPORT INFORMATION
  Report Type: 
  Country: None (occurrence: None)
  Receive Date: 20100611
  Receipt Date: 20100602
  Transmission Date: 20101027
  Serious: Yes (Other)
  Sender: FDA-Public Use
  Company Number: JP-ROCHE-708307

PATIENT
  Sex: Female

DRUGS (5)
  1. AVASTIN [Suspect]
     Indication: LARGE INTESTINE CARCINOMA
     Route: 042
     Dates: start: 20100113
  2. CAMPTOSAR [Suspect]
     Indication: LARGE INTESTINE CARCINOMA
     Route: 041
  3. LEUCOVORIN CALCIUM [Concomitant]
     Dosage: DOSAGE WAS UNCERTAIN.
     Route: 042
  4. FLUOROURACIL [Concomitant]
     Dosage: ROUTE: INTRAVENOUS DRIP.  DOSAGE WAS UNCERTAIN.
     Route: 042
  5. FLUOROURACIL [Concomitant]
     Dosage: ROUTE: INTRAVENOUS BOLUS. DOSAGE WAS UNCERTAIN.
     Route: 042

REACTIONS (1)
  - DEMENTIA [None]
